FAERS Safety Report 25927010 (Version 1)
Quarter: 2025Q4

REPORT INFORMATION
  Report Type: Spontaneous
  Country: US (occurrence: US)
  Receive Date: 20251015
  Receipt Date: 20251015
  Transmission Date: 20260119
  Serious: No
  Sender: BIOMARIN
  Company Number: US-BIOMARINAP-US-2025-169266

PATIENT
  Sex: Female
  Weight: 64.853 kg

DRUGS (1)
  1. VIMIZIM [Suspect]
     Active Substance: ELOSULFASE ALFA
     Indication: Mucopolysaccharidosis IV
     Dosage: 140 MILLIGRAM, QW
     Dates: start: 202406

REACTIONS (1)
  - Weight decreased [Unknown]
